FAERS Safety Report 22171665 (Version 1)
Quarter: 2023Q2

REPORT INFORMATION
  Report Type: Spontaneous
  Country: CN (occurrence: CN)
  Receive Date: 20230404
  Receipt Date: 20230404
  Transmission Date: 20230722
  Serious: Yes (Other)
  Sender: FDA-Public Use
  Company Number: CN-009507513-2304CHN000184

PATIENT
  Age: 80 Year
  Sex: Male
  Weight: 66 kg

DRUGS (3)
  1. KEYTRUDA [Suspect]
     Active Substance: PEMBROLIZUMAB
     Indication: Rectal cancer
     Dosage: 200 MG, ONCE, IV DRIP
     Route: 041
     Dates: start: 20230322, end: 20230322
  2. OXALIPLATIN [Suspect]
     Active Substance: OXALIPLATIN
     Indication: Rectal cancer
     Dosage: 190 MG, ONCE, IV DRIP
     Route: 041
     Dates: start: 20230322, end: 20230322
  3. RALTITREXED [Suspect]
     Active Substance: RALTITREXED
     Indication: Rectal cancer
     Dosage: 5 MG, ONCE, IV DRIP
     Route: 041
     Dates: start: 20230322, end: 20230322

REACTIONS (2)
  - Myelosuppression [Unknown]
  - Product use issue [Unknown]

NARRATIVE: CASE EVENT DATE: 20230322
